FAERS Safety Report 13701323 (Version 1)
Quarter: 2017Q2

REPORT INFORMATION
  Report Type: Spontaneous
  Country: US (occurrence: US)
  Receive Date: 20170629
  Receipt Date: 20170629
  Transmission Date: 20170830
  Serious: No
  Sender: FDA-Public Use
  Company Number: US-ALLERGAN-1720889US

PATIENT
  Sex: Male
  Weight: 107.94 kg

DRUGS (1)
  1. VIBERZI [Suspect]
     Active Substance: ELUXADOLINE
     Indication: IRRITABLE BOWEL SYNDROME

REACTIONS (3)
  - Musculoskeletal discomfort [Unknown]
  - Joint injury [Recovering/Resolving]
  - Hypoaesthesia [Recovering/Resolving]
